FAERS Safety Report 4654098-6 (Version None)
Quarter: 2005Q2

REPORT INFORMATION
  Report Type: 
  Country: None (occurrence: None)
  Receive Date: 20050504
  Receipt Date: 20050422
  Transmission Date: 20051028
  Serious: Yes (Hospitalization)
  Sender: FDA-Public Use
  Company Number: 200510292BFR

PATIENT
  Age: 68 Year
  Sex: Male

DRUGS (5)
  1. CIPROFLOXACIN HCL [Suspect]
     Dosage: 800 MG, TOTAL DAILY, INTRAVENOUS
     Route: 042
     Dates: start: 20041217, end: 20041226
  2. SOLU-MEDROL [Suspect]
     Dates: start: 20041129
  3. FLUCONAZOLE [Suspect]
     Dates: start: 20041216
  4. ZYVOXID (LINEZOLID) [Suspect]
     Dosage: 1200 MG, TOTAL DAILY
     Dates: start: 20041217, end: 20050103
  5. PRIMAXIN [Suspect]
     Dosage: 1500 MG, QD, INTRAVENOUS
     Route: 042
     Dates: start: 20041129, end: 20041228

REACTIONS (4)
  - HAEMOGLOBIN DECREASED [None]
  - RED BLOOD CELL COUNT DECREASED [None]
  - THROMBOTIC THROMBOCYTOPENIC PURPURA [None]
  - WHITE BLOOD CELL COUNT DECREASED [None]
